FAERS Safety Report 6286136-1 (Version None)
Quarter: 2009Q3

REPORT INFORMATION
  Report Type: 
  Country: None (occurrence: None)
  Receive Date: 20090728
  Receipt Date: 20090721
  Transmission Date: 20100115
  Serious: Yes (Other)
  Sender: FDA-Public Use
  Company Number: CO-ROCHE-644939

PATIENT
  Sex: Female

DRUGS (2)
  1. CELLCEPT [Suspect]
     Indication: SYSTEMIC LUPUS ERYTHEMATOSUS
     Dosage: FREQUENCY:QD
     Route: 048
     Dates: start: 20090528
  2. DIURETIC [Concomitant]
     Indication: OEDEMA

REACTIONS (2)
  - OEDEMA [None]
  - PROTEINURIA [None]
